FAERS Safety Report 17811303 (Version 1)
Quarter: 2020Q2

REPORT INFORMATION
  Report Type: Spontaneous
  Country: CN (occurrence: CN)
  Receive Date: 20200521
  Receipt Date: 20200521
  Transmission Date: 20200714
  Serious: Yes (Other)
  Sender: FDA-Public Use
  Company Number: CN-SUN PHARMACEUTICAL INDUSTRIES LTD-2020R1-247405

PATIENT
  Age: 52 Year
  Sex: Male
  Weight: 75 kg

DRUGS (4)
  1. FENTANYL. [Suspect]
     Active Substance: FENTANYL
     Indication: ANAESTHESIA
     Dosage: 100 MICROGRAM
     Route: 065
  2. NALDEBAIN [Suspect]
     Active Substance: DINALBUPHINE SEBACATE
     Indication: ANAESTHESIA
     Dosage: 150 MG
     Route: 065
  3. TENOXICAM [Suspect]
     Active Substance: TENOXICAM
     Indication: ANAESTHESIA
     Dosage: 20 MILLIGRAM
     Route: 065
  4. TRAMADOL. [Suspect]
     Active Substance: TRAMADOL
     Indication: PAIN
     Dosage: 100 MG
     Route: 065

REACTIONS (4)
  - Drug ineffective [Unknown]
  - Heart rate increased [Unknown]
  - Drug interaction [Unknown]
  - Blood pressure increased [Unknown]
